FAERS Safety Report 4363080-8 (Version None)
Quarter: 2004Q2

REPORT INFORMATION
  Report Type: 
  Country: None (occurrence: None)
  Receive Date: 20040517
  Receipt Date: 20040322
  Transmission Date: 20050107
  Serious: No
  Sender: FDA-Public Use
  Company Number: S04-USA-01785-01

PATIENT
  Age: 78 Year
  Sex: Female

DRUGS (12)
  1. NAMENDA [Suspect]
     Dosage: 10 MG BID PO
     Route: 048
     Dates: start: 20040223
  2. NAMENDA [Suspect]
     Dosage: 5 MG QD PO
     Route: 048
     Dates: start: 20040202, end: 20040208
  3. NAMENDA [Suspect]
     Dosage: 10 MG QD PO
     Route: 048
     Dates: start: 20040209, end: 20040215
  4. NAMENDA [Suspect]
     Dosage: 15 MG QD PO
     Route: 048
     Dates: start: 20040216, end: 20040222
  5. CELEXA [Concomitant]
  6. NORVASC [Concomitant]
  7. PREVACID [Concomitant]
  8. SINGULAIR [Concomitant]
  9. LASIX [Concomitant]
  10. SPIRONOLACTONE [Concomitant]
  11. POTASSIUM CHLORIDE [Concomitant]
  12. ZAROXOLYN [Concomitant]

REACTIONS (2)
  - CONFUSIONAL STATE [None]
  - NAUSEA [None]
